FAERS Safety Report 7423169 (Version 4)
Quarter: 2013Q1

REPORT INFORMATION
  Report Type: Spontaneous
  Country: US (occurrence: None)
  Receive Date: 20100610
  Receipt Date: 20130128
  Transmission Date: 20140127
  Serious: Yes (Death)
  Sender: FDA-Public Use
  Company Number: JPI-P-010848

PATIENT
  Age: 31 Year
  Sex: Male

DRUGS (4)
  1. XYREM [Suspect]
     Indication: INSOMNIA
     Dosage: 5 GM (2.5 GM, 2 IN 1 D), ORAL
     Route: 048
     Dates: start: 20100518, end: 20100525
  2. XYREM [Suspect]
     Indication: NARCOLEPSY
     Dosage: 5 GM (2.5 GM, 2 IN 1 D), ORAL
     Route: 048
     Dates: start: 20100518, end: 20100525
  3. TEMAZEPAM [Concomitant]
  4. PROPRANOLOL [Concomitant]

REACTIONS (2)
  - Road traffic accident [None]
  - Injury [None]
